FAERS Safety Report 5601395-3 (Version None)
Quarter: 2008Q1

REPORT INFORMATION
  Report Type: 
  Country: None (occurrence: None)
  Receive Date: 20080124
  Receipt Date: 20080117
  Transmission Date: 20080703
  Serious: Yes (Death, Hospitalization)
  Sender: FDA-Public Use
  Company Number: JP-ELI_LILLY_AND_COMPANY-JP200704001368

PATIENT
  Sex: Male
  Weight: 46.5 kg

DRUGS (9)
  1. PEMETREXED [Suspect]
     Indication: PLEURAL MESOTHELIOMA MALIGNANT
     Dosage: 750 MG, OTHER
     Route: 042
     Dates: start: 20070306, end: 20070306
  2. CISPLATIN [Suspect]
     Indication: PLEURAL MESOTHELIOMA MALIGNANT
     Dosage: 100 MG, OTHER
     Route: 042
     Dates: start: 20070306, end: 20070306
  3. GEMCITABINE HCL [Concomitant]
     Indication: PLEURAL MESOTHELIOMA MALIGNANT
     Dosage: 900 MG/M2, OTHER
     Route: 042
     Dates: start: 20070410, end: 20070803
  4. CARBOPLATIN [Concomitant]
     Indication: PLEURAL MESOTHELIOMA MALIGNANT
     Dosage: 250 MG, OTHER
     Route: 042
     Dates: start: 20070410, end: 20070410
  5. PANVITAN [Concomitant]
     Dosage: 0.5 MG, DAILY (1/D)
     Route: 048
     Dates: start: 20070222, end: 20070508
  6. CYANOCOBALAMIN [Concomitant]
     Dosage: 1 MG, DAILY (1/D)
     Route: 058
     Dates: start: 20070222, end: 20070222
  7. KYTRIL [Concomitant]
     Indication: PROPHYLAXIS
     Dosage: 3 MG, UNKNOWN
     Route: 042
     Dates: start: 20061218, end: 20070803
  8. DECADRON [Concomitant]
     Indication: PROPHYLAXIS
     Dosage: 8 MG, OTHER
     Route: 042
     Dates: start: 20061218, end: 20070803
  9. TAKEPRON [Concomitant]
     Indication: REFLUX OESOPHAGITIS
     Dosage: 30 MG, DAILY (1/D)
     Route: 048
     Dates: start: 20070113, end: 20070928

REACTIONS (8)
  - ANAEMIA [None]
  - INFECTION [None]
  - LYMPHOCYTE COUNT DECREASED [None]
  - MYELODYSPLASTIC SYNDROME [None]
  - NEUTROPHIL COUNT DECREASED [None]
  - PLATELET COUNT DECREASED [None]
  - RENAL IMPAIRMENT [None]
  - WHITE BLOOD CELL COUNT DECREASED [None]
